FAERS Safety Report 24548184 (Version 1)
Quarter: 2024Q4

REPORT INFORMATION
  Report Type: Spontaneous
  Country: KR (occurrence: KR)
  Receive Date: 20241025
  Receipt Date: 20241025
  Transmission Date: 20250115
  Serious: Yes (Other)
  Sender: BRISTOL-MYERS SQUIBB COMPANY
  Company Number: KR-BRISTOL-MYERS SQUIBB COMPANY-2024-166742

PATIENT
  Sex: Female

DRUGS (1)
  1. BARACLUDE [Suspect]
     Active Substance: ENTECAVIR
     Indication: Product used for unknown indication

REACTIONS (2)
  - Hepatitis B [Unknown]
  - Drug tolerance [Unknown]
